FAERS Safety Report 10613249 (Version 1)
Quarter: 2014Q4

REPORT INFORMATION
  Report Type: Spontaneous
  Country: DE (occurrence: DE)
  Receive Date: 20141128
  Receipt Date: 20141128
  Transmission Date: 20150529
  Serious: Yes (Other)
  Sender: FDA-Public Use
  Company Number: DE-DRREDDYS-GER/GER/14/0044564

PATIENT
  Age: 78 Year
  Sex: Female

DRUGS (1)
  1. MEMANTINHYDROCHLORID BETA 20MG FILMTABLETTEN [Suspect]
     Active Substance: MEMANTINE
     Indication: DEMENTIA ALZHEIMER^S TYPE
     Route: 048

REACTIONS (3)
  - Blood pressure decreased [Recovered/Resolved]
  - Mood swings [Unknown]
  - Crying [Recovering/Resolving]
